FAERS Safety Report 4936718-1 (Version None)
Quarter: 2006Q1

REPORT INFORMATION
  Report Type: 
  Country: None (occurrence: None)
  Receive Date: 20060307
  Receipt Date: 20051123
  Transmission Date: 20060701
  Serious: Yes (Death, Hospitalization, Disabling)
  Sender: FDA-Public Use
  Company Number: US-ROCHE-426618

PATIENT
  Age: 16 Year
  Sex: Female
  Weight: 68 kg

DRUGS (10)
  1. ACCUTANE [Suspect]
     Indication: ACNE
     Route: 048
     Dates: start: 19930815, end: 19931130
  2. ASACOL [Concomitant]
  3. IMURAN [Concomitant]
  4. PREDNISONE [Concomitant]
  5. PHENERGAN [Concomitant]
  6. CIPRO [Concomitant]
  7. TEGRETOL [Concomitant]
  8. DEMEROL [Concomitant]
  9. METHADONE [Concomitant]
  10. CORTISOL [Concomitant]

REACTIONS (28)
  - ANAEMIA [None]
  - ANXIETY [None]
  - AUTOIMMUNE DISORDER [None]
  - AUTOIMMUNE HEPATITIS [None]
  - CELLULITIS [None]
  - CHOLECYSTITIS [None]
  - COLITIS [None]
  - CONVULSION [None]
  - DIABETES MELLITUS [None]
  - DRUG DEPENDENCE [None]
  - GASTROINTESTINAL DISORDER [None]
  - HAEMORRHOIDS [None]
  - HEPATIC CIRRHOSIS [None]
  - HEPATIC FAILURE [None]
  - INFLAMMATORY BOWEL DISEASE [None]
  - INTESTINAL HAEMORRHAGE [None]
  - IRRITABLE BOWEL SYNDROME [None]
  - MULTI-ORGAN DISORDER [None]
  - NEPHROLITHIASIS [None]
  - OBSESSIVE-COMPULSIVE DISORDER [None]
  - PANCYTOPENIA [None]
  - PERIRECTAL ABSCESS [None]
  - PYELONEPHRITIS [None]
  - RENAL DISORDER [None]
  - RENAL FAILURE [None]
  - SYSTEMIC LUPUS ERYTHEMATOSUS [None]
  - THROMBOCYTOPENIA [None]
  - URINARY TRACT INFECTION [None]
